FAERS Safety Report 7963396-X (Version None)
Quarter: 2011Q4

REPORT INFORMATION
  Report Type: 
  Country: None (occurrence: None)
  Receive Date: 20111205
  Receipt Date: 20111124
  Transmission Date: 20120403
  Serious: Yes (Other)
  Sender: FDA-Public Use
  Company Number: 2011MA002363

PATIENT
  Age: 61 Year
  Sex: Female

DRUGS (12)
  1. MEBEVERINE [Concomitant]
  2. ASPIRIN [Concomitant]
  3. BENDROFLUMETHIAZINE [Concomitant]
  4. SIMVASTATIN [Concomitant]
  5. INDAPAMIDE [Concomitant]
  6. DILTIAZEM HYDROCHLORIDE [Suspect]
     Dosage: PO
     Route: 048
  7. DILTIAZEM HYDROCHLORIDE [Suspect]
     Dosage: PO
     Route: 048
     Dates: start: 20101006, end: 20101104
  8. SOTALOL HCL [Concomitant]
  9. HERBAL MEDICATION [Concomitant]
  10. LOSARTAN POTASSIUM [Concomitant]
  11. DABDELION [Concomitant]
  12. BISOPROLOL FUMARATE [Suspect]
     Dates: start: 20101001, end: 20101006

REACTIONS (8)
  - VERTIGO [None]
  - VISUAL IMPAIRMENT [None]
  - HYPOAESTHESIA [None]
  - MIGRAINE [None]
  - BLOOD PRESSURE INCREASED [None]
  - DRUG HYPERSENSITIVITY [None]
  - VISION BLURRED [None]
  - DIZZINESS [None]
